FAERS Safety Report 7290857-1 (Version None)
Quarter: 2011Q1

REPORT INFORMATION
  Report Type: 
  Country: None (occurrence: None)
  Receive Date: 20110214
  Receipt Date: 20110208
  Transmission Date: 20110831
  Serious: Yes (Other)
  Sender: FDA-Public Use
  Company Number: NL-JNJFOC-20110202342

PATIENT
  Sex: Female
  Weight: 67.5 kg

DRUGS (1)
  1. CONCERTA [Suspect]
     Indication: ATTENTION DEFICIT/HYPERACTIVITY DISORDER
     Dosage: LATENCY OF 4 YEARS AFTER START
     Route: 065

REACTIONS (3)
  - SYNCOPE [None]
  - HALLUCINATION, VISUAL [None]
  - HALLUCINATION, AUDITORY [None]
